FAERS Safety Report 6775636-3 (Version None)
Quarter: 2010Q2

REPORT INFORMATION
  Report Type: 
  Country: None (occurrence: None)
  Receive Date: 20100617
  Receipt Date: 20100609
  Transmission Date: 20101027
  Serious: Yes (Other)
  Sender: FDA-Public Use
  Company Number: US-AMGEN-QUU409876

PATIENT
  Sex: Male

DRUGS (4)
  1. ENBREL [Suspect]
     Indication: PSORIATIC ARTHROPATHY
     Route: 058
     Dates: start: 20030203, end: 20100412
  2. CELEBREX [Concomitant]
     Dates: start: 20010313
  3. NEXIUM [Concomitant]
  4. LIPITOR [Concomitant]

REACTIONS (2)
  - AORTIC VALVE REPLACEMENT [None]
  - LYMPHOCYTIC LYMPHOMA [None]
